FAERS Safety Report 8082031-6 (Version None)
Quarter: 2012Q1

REPORT INFORMATION
  Report Type: 
  Country: None (occurrence: None)
  Receive Date: 20120130
  Receipt Date: 20120123
  Transmission Date: 20120608
  Serious: Yes (Life-Threatening, Hospitalization, Other)
  Sender: FDA-Public Use
  Company Number: GXKR2011DE003478

PATIENT
  Age: 68 Year
  Sex: Male

DRUGS (7)
  1. RAMIPRIL [Concomitant]
     Dosage: 5 MG/DAY
     Dates: end: 20100407
  2. ALDACTONE [Concomitant]
     Dosage: 50 MG/DAY
     Dates: start: 20100331, end: 20100407
  3. CEFUROXIME [Suspect]
     Dosage: 500 MG, TID
     Route: 048
     Dates: start: 20100330, end: 20100406
  4. ALDACTONE [Concomitant]
     Dosage: 25 MG/DAY
  5. INSULIN [Concomitant]
  6. CLARITHROMYCIN [Suspect]
     Dosage: 500 MG, BID
     Route: 048
     Dates: start: 20100330, end: 20100406
  7. TORSEMIDE [Suspect]
     Dosage: 30 MG, QD
     Dates: start: 20100401, end: 20100407

REACTIONS (1)
  - RENAL FAILURE ACUTE [None]
